FAERS Safety Report 8593977 (Version 2)
Quarter: 2014Q2

REPORT INFORMATION
  Report Type: Report from Study
  Country: US (occurrence: US)
  Receive Date: 20120604
  Receipt Date: 20140610
  Transmission Date: 20141212
  Serious: Yes (Hospitalization, Other)
  Sender: FDA-Public Use
  Company Number: US-BAYER-2012-053862

PATIENT
  Age: 56 Year
  Sex: Female
  Weight: 48.2 kg

DRUGS (15)
  1. NAPROXEN SODIUM HIGH DOSE (} 220 MG) [Suspect]
     Indication: PSORIATIC ARTHROPATHY
     Dosage: 500 MG, PRN
     Route: 048
     Dates: start: 200410
  2. IBUPROFEN [Suspect]
     Indication: BACK PAIN
     Dosage: 400 MG, PRN
     Dates: start: 198009
  3. PLACEBO (TOFACITINIB CITRATE) [Suspect]
     Indication: PSORIASIS
     Dosage: 10 MG, BID
     Route: 048
     Dates: start: 20110811, end: 20120809
  4. NIASPAN [Concomitant]
     Dosage: UNK
     Dates: start: 20111013
  5. VITAMIN D [Concomitant]
     Dosage: UNK
     Dates: start: 200901
  6. BIOTIN [Concomitant]
     Dosage: UNK
     Dates: start: 200901
  7. DIGESTIVE ENZYMES [Concomitant]
     Dosage: UNK
     Dates: start: 201103
  8. KELP [Concomitant]
     Dosage: UNK
     Dates: start: 201103
  9. IODINE [Concomitant]
     Dosage: UNK
     Dates: start: 201103
  10. FISH OIL [Concomitant]
  11. COQ10 [Concomitant]
     Dosage: UNK
     Dates: start: 200904
  12. VITAMIN B12 [Concomitant]
     Dosage: UNK
     Dates: start: 200702
  13. VITAMIN C [Concomitant]
     Dosage: UNK
     Dates: start: 198506
  14. VITAMIN B6 [Concomitant]
     Dosage: UNK
     Dates: start: 198506
  15. FOLIC ACID [Concomitant]
     Dosage: UNK
     Dates: start: 198506

REACTIONS (7)
  - Oesophageal ulcer haemorrhage [Recovered/Resolved]
  - Diarrhoea haemorrhagic [Recovered/Resolved]
  - Oesophageal stenosis [None]
  - Hiatus hernia [None]
  - Duodenitis [None]
  - Anaemia [None]
  - Gastritis [None]
